FAERS Safety Report 4579688-0 (Version None)
Quarter: 2005Q1

REPORT INFORMATION
  Report Type: 
  Country: None (occurrence: None)
  Receive Date: 20050210
  Receipt Date: 20050204
  Transmission Date: 20050727
  Serious: Yes (Hospitalization, Other)
  Sender: FDA-Public Use
  Company Number: KII-2005-0015042

PATIENT
  Age: 41 Year
  Sex: Female

DRUGS (6)
  1. OXYCONTIN [Suspect]
     Dosage: ORAL
     Route: 048
  2. BENZODIAZEPINE DERIVATIVES [Suspect]
  3. ANTIHISTAMINES FOR SYSTEMIC USE [Suspect]
     Dosage: ORAL
     Route: 048
  4. TETRAHYDROCANNABINOL (TETRAHYDROCANNABINOL) [Suspect]
  5. AMFETAMINE (AFETAMINE) [Suspect]
  6. ETHANOL (ETHANOLOL) [Suspect]

REACTIONS (7)
  - ALCOHOL USE [None]
  - BLOOD GLUCOSE DECREASED [None]
  - DRUG SCREEN POSITIVE [None]
  - INTENTIONAL MISUSE [None]
  - MENTAL IMPAIRMENT [None]
  - POLYSUBSTANCE ABUSE [None]
  - THERAPY NON-RESPONDER [None]
